FAERS Safety Report 7643578-7 (Version None)
Quarter: 2011Q3

REPORT INFORMATION
  Report Type: 
  Country: None (occurrence: None)
  Receive Date: 20110729
  Receipt Date: 20110725
  Transmission Date: 20111222
  Serious: Yes (Death)
  Sender: FDA-Public Use
  Company Number: US-B.I. PHARMACEUTICALS,INC./RIDGEFIELD-2011-BP-18459BP

PATIENT
  Sex: Female

DRUGS (1)
  1. MIRAPEX [Suspect]
     Indication: RESTLESS LEGS SYNDROME

REACTIONS (7)
  - MOBILITY DECREASED [None]
  - FALL [None]
  - DEAFNESS [None]
  - EAR INFECTION FUNGAL [None]
  - BACK INJURY [None]
  - DEATH [None]
  - HALLUCINATION [None]
